FAERS Safety Report 7499593-X (Version None)
Quarter: 2011Q2

REPORT INFORMATION
  Report Type: 
  Country: None (occurrence: None)
  Receive Date: 20110516
  Receipt Date: 20110506
  Transmission Date: 20111010
  Serious: Yes (Hospitalization, Other)
  Sender: FDA-Public Use
  Company Number: 2011SP003700

PATIENT
  Age: 29 Year
  Sex: Female
  Weight: 80.7403 kg

DRUGS (1)
  1. NUVARING [Suspect]
     Indication: CONTRACEPTION
     Dates: start: 20090101, end: 20090201

REACTIONS (11)
  - INJURY [None]
  - PULMONARY EMBOLISM [None]
  - MENTAL DISORDER [None]
  - EMOTIONAL DISORDER [None]
  - OVARIAN CYST [None]
  - PREGNANCY [None]
  - CARDIAC MURMUR [None]
  - COGNITIVE DISORDER [None]
  - DRUG EXPOSURE BEFORE PREGNANCY [None]
  - ABORTION SPONTANEOUS [None]
  - PNEUMONIA [None]
